FAERS Safety Report 7113201-9 (Version None)
Quarter: 2010Q4

REPORT INFORMATION
  Report Type: 
  Country: None (occurrence: None)
  Receive Date: 20101119
  Receipt Date: 20091105
  Transmission Date: 20110411
  Serious: No
  Sender: FDA-Public Use
  Company Number: A0815378A

PATIENT
  Age: 26 Year
  Sex: Female

DRUGS (2)
  1. WELLBUTRIN [Suspect]
     Indication: DEPRESSION
     Dosage: 150MG PER DAY
     Route: 048
     Dates: start: 20090701
  2. CLONAZEPAM [Concomitant]

REACTIONS (6)
  - DEPRESSION [None]
  - ENERGY INCREASED [None]
  - HEADACHE [None]
  - MEMORY IMPAIRMENT [None]
  - STRESS [None]
  - WEIGHT INCREASED [None]
